FAERS Safety Report 5328081-1 (Version None)
Quarter: 2007Q2

REPORT INFORMATION
  Report Type: 
  Country: None (occurrence: None)
  Receive Date: 20070517
  Receipt Date: 20070511
  Transmission Date: 20071010
  Serious: Yes (Other)
  Sender: FDA-Public Use
  Company Number: JP-MERCK-0705USA01817

PATIENT
  Age: 87 Year
  Sex: Male

DRUGS (9)
  1. PEPCID RPD [Suspect]
     Route: 048
  2. VESICARE [Concomitant]
     Route: 048
     Dates: start: 20070301
  3. NORVASC [Concomitant]
     Route: 048
  4. MAGLAX [Concomitant]
     Route: 048
  5. LAC-B [Concomitant]
     Route: 065
  6. MIYA BM [Concomitant]
     Route: 065
  7. HALCION [Concomitant]
     Route: 048
  8. DIGOXIN [Concomitant]
     Route: 065
  9. AMBROXOL HYDROCHLORIDE [Concomitant]
     Route: 065

REACTIONS (1)
  - DEMENTIA [None]
